FAERS Safety Report 4917406-4 (Version None)
Quarter: 2006Q1

REPORT INFORMATION
  Report Type: 
  Country: None (occurrence: None)
  Receive Date: 20060221
  Receipt Date: 20060217
  Transmission Date: 20060701
  Serious: Yes (Other)
  Sender: FDA-Public Use
  Company Number: PHBS2006ES02594

PATIENT
  Age: 53 Year
  Sex: Male

DRUGS (4)
  1. LYMETEL PROLIB (LIC TO LABORATORIOS ANDROMACO) [Suspect]
     Dosage: 80 MG/DAY
     Dates: start: 20050202, end: 20050624
  2. AMERIDE [Concomitant]
     Dosage: 0.5 DF, QD
     Route: 048
     Dates: start: 20050202
  3. ASTUDAL [Concomitant]
     Dosage: 5 MG, QD
     Dates: start: 20050202
  4. GLUCOBAY [Concomitant]
     Dosage: 150 MG, TID
     Dates: start: 20050415, end: 20050417

REACTIONS (2)
  - ARTHRALGIA [None]
  - ASTHENIA [None]
